FAERS Safety Report 8485753-8 (Version None)
Quarter: 2012Q3

REPORT INFORMATION
  Report Type: 
  Country: None (occurrence: None)
  Receive Date: 20120703
  Receipt Date: 20120627
  Transmission Date: 20120928
  Serious: Yes (Death, Other)
  Sender: FDA-Public Use
  Company Number: BE-BAYER-2012-046837

PATIENT
  Age: 19 Year
  Sex: Female
  Weight: 50 kg

DRUGS (3)
  1. MOTILIUM [Suspect]
     Dosage: 10 MG, UNK
     Route: 048
     Dates: start: 20120412, end: 20120416
  2. AMOXICILLIN [Concomitant]
     Indication: ACUTE TONSILLITIS
     Dosage: UNK
     Dates: start: 20120101, end: 20120101
  3. AVELOX [Suspect]
     Indication: MONONUCLEOSIS SYNDROME
     Dosage: UNK
     Route: 048
     Dates: start: 20120413, end: 20120417

REACTIONS (8)
  - MALAISE [None]
  - SYNCOPE [None]
  - VOMITING [None]
  - HEPATITIS FULMINANT [None]
  - TORSADE DE POINTES [None]
  - MYOCARDITIS [None]
  - CARDIAC ARREST [None]
  - SUDDEN DEATH [None]
